FAERS Safety Report 5608800-7 (Version None)
Quarter: 2008Q1

REPORT INFORMATION
  Report Type: 
  Country: None (occurrence: None)
  Receive Date: 20080129
  Receipt Date: 20080129
  Transmission Date: 20080703
  Serious: Yes (Hospitalization)
  Sender: FDA-Public Use
  Company Number: None

PATIENT
  Age: 88 Year
  Sex: Male
  Weight: 66.9 kg

DRUGS (10)
  1. ASPIRIN/DIPYRIDAMOLE (25/250) [Suspect]
     Indication: CEREBROVASCULAR ACCIDENT
     Dosage: ONE TAB BID ORAL
     Route: 048
     Dates: start: 20070719, end: 20071205
  2. APAP 650MG/HYDROCODONE [Concomitant]
  3. CARBIDOPA 25MG/LEVADOPA 250MG [Concomitant]
  4. CEPHALEXIN [Concomitant]
  5. DIPYRIDAMOLE/ASPIRIN [Concomitant]
  6. DOCUSATE SODIUM [Concomitant]
  7. FERROUS SULFATE TAB [Concomitant]
  8. LACTOBACILLUS [Concomitant]
  9. LISINOPRIL [Concomitant]
  10. METOPROLOL (TOPROL-XL) [Concomitant]

REACTIONS (5)
  - ARTERIAL BYPASS OPERATION [None]
  - GASTRIC HAEMORRHAGE [None]
  - GASTROINTESTINAL HAEMORRHAGE [None]
  - POST PROCEDURAL HAEMORRHAGE [None]
  - RECTAL HAEMORRHAGE [None]
